FAERS Safety Report 5461139-5 (Version None)
Quarter: 2007Q3

REPORT INFORMATION
  Report Type: 
  Country: None (occurrence: None)
  Receive Date: 20070920
  Receipt Date: 20070912
  Transmission Date: 20080115
  Serious: Yes (Other)
  Sender: FDA-Public Use
  Company Number: PHBS2007DK15267

PATIENT
  Age: 70 Year
  Sex: Female

DRUGS (3)
  1. METFORMIN HCL [Concomitant]
     Indication: DIABETES MELLITUS
  2. AMARYL [Concomitant]
     Indication: DIABETES MELLITUS
  3. EXFORGE [Suspect]
     Indication: HYPERTENSION
     Dosage: VALS 160 / AMLO 10 MG/DAY
     Route: 048
     Dates: start: 20070627

REACTIONS (1)
  - MICROALBUMINURIA [None]
